FAERS Safety Report 21729932 (Version 2)
Quarter: 2023Q4

REPORT INFORMATION
  Report Type: Spontaneous
  Country: US (occurrence: US)
  Receive Date: 20221214
  Receipt Date: 20231226
  Transmission Date: 20240110
  Serious: No
  Sender: FDA-Public Use
  Company Number: US-AZURITY PHARMACEUTICALS, INC.-US-2022ARB002259

PATIENT
  Age: 67 Year
  Sex: Female
  Weight: 59.9 kg

DRUGS (3)
  1. THYQUIDITY [Suspect]
     Active Substance: LEVOTHYROXINE SODIUM
     Indication: Hormone replacement therapy
     Dosage: 125 MCG/ 6.25 ML, QD
     Route: 048
     Dates: start: 202205, end: 20230616
  2. THYQUIDITY [Suspect]
     Active Substance: LEVOTHYROXINE SODIUM
     Dosage: UNK
     Dates: start: 2023
  3. MELATONIN [Concomitant]
     Active Substance: MELATONIN
     Indication: Product used for unknown indication
     Dosage: UNK

REACTIONS (7)
  - Dental caries [Not Recovered/Not Resolved]
  - Tooth resorption [Not Recovered/Not Resolved]
  - Pain in extremity [Recovered/Resolved]
  - Acne [Not Recovered/Not Resolved]
  - Tooth disorder [Recovered/Resolved]
  - Erythema [Not Recovered/Not Resolved]
  - Rash [Unknown]

NARRATIVE: CASE EVENT DATE: 20220901
